FAERS Safety Report 9419451 (Version 2)
Quarter: 2013Q3

REPORT INFORMATION
  Report Type: Spontaneous
  Country: US (occurrence: US)
  Receive Date: 20130725
  Receipt Date: 20130829
  Transmission Date: 20140515
  Serious: Yes (Death, Other)
  Sender: FDA-Public Use
  Company Number: US-PFIZER INC-2013216828

PATIENT
  Sex: 0

DRUGS (1)
  1. ALDACTONE [Suspect]
     Dosage: UNK

REACTIONS (1)
  - Death [Fatal]
